FAERS Safety Report 5178980-9 (Version None)
Quarter: 2006Q4

REPORT INFORMATION
  Report Type: 
  Country: None (occurrence: None)
  Receive Date: 20061215
  Receipt Date: 20061215
  Transmission Date: 20070319
  Serious: Yes (Death)
  Sender: FDA-Public Use
  Company Number: None

PATIENT
  Age: 51 Year
  Sex: Female
  Weight: 96.6162 kg

DRUGS (1)
  1. MAGNEVIST [Suspect]
     Indication: BACK PAIN
     Dosage: 20CC  X1  IV BOLUS
     Route: 040
     Dates: start: 20061207, end: 20061207

REACTIONS (11)
  - BLOOD PRESSURE INCREASED [None]
  - BRUXISM [None]
  - CONVULSION [None]
  - COUGH [None]
  - FALL [None]
  - FOAMING AT MOUTH [None]
  - HYPERHIDROSIS [None]
  - LOSS OF CONSCIOUSNESS [None]
  - ORAL MUCOSAL DISCOLOURATION [None]
  - PULSE ABSENT [None]
  - RESPIRATORY ARREST [None]
